FAERS Safety Report 5419348-7 (Version None)
Quarter: 2007Q3

REPORT INFORMATION
  Report Type: 
  Country: None (occurrence: None)
  Receive Date: 20070815
  Receipt Date: 20070815
  Transmission Date: 20080115
  Serious: Yes (Life-Threatening)
  Sender: FDA-Public Use
  Company Number: None

PATIENT
  Age: 57 Year
  Sex: Female
  Weight: 54.4316 kg

DRUGS (1)
  1. AVANDARYL [Suspect]
     Indication: DIABETES MELLITUS
     Dosage: 1 TABLET TWICE A DAY PO
     Route: 048
     Dates: start: 20050601, end: 20070601

REACTIONS (2)
  - CARDIOMYOPATHY [None]
  - VIRAL INFECTION [None]
